FAERS Safety Report 23431930 (Version 1)
Quarter: 2024Q1

REPORT INFORMATION
  Report Type: Other
  Country: GB (occurrence: GB)
  Receive Date: 20240123
  Receipt Date: 20240123
  Transmission Date: 20240410
  Serious: Yes (Other)
  Sender: FDA-Public Use
  Company Number: None

PATIENT

DRUGS (1)
  1. MOMETASONE FUROATE [Suspect]
     Active Substance: MOMETASONE FUROATE
     Indication: Eczema
     Dosage: UNK
     Route: 065

REACTIONS (5)
  - Erythema [Recovering/Resolving]
  - Topical steroid withdrawal reaction [Unknown]
  - Bedridden [Unknown]
  - Adverse drug reaction [Unknown]
  - Pain of skin [Unknown]

NARRATIVE: CASE EVENT DATE: 20220201
